FAERS Safety Report 4578848-2 (Version None)
Quarter: 2005Q1

REPORT INFORMATION
  Report Type: 
  Country: None (occurrence: None)
  Receive Date: 20050211
  Receipt Date: 20050114
  Transmission Date: 20050727
  Serious: Yes (Life-Threatening)
  Sender: FDA-Public Use
  Company Number: PHEH2005US00910

PATIENT
  Age: 30 Year
  Sex: Female
  Weight: 40 kg

DRUGS (4)
  1. SIMULECT [Suspect]
     Indication: RENAL TRANSPLANT
     Dosage: 20 MG, ONCE/SINGLE
     Dates: start: 20050112, end: 20050112
  2. SIMULECT [Suspect]
     Dosage: 20 MG, ONCE/SINGLE
     Route: 042
     Dates: start: 20050118, end: 20050118
  3. MYCOPHENOLATE MOFETIL [Concomitant]
     Dosage: UNK G, ONCE/SINGLE
     Route: 042
     Dates: start: 20050112, end: 20050112
  4. DEXAMETHASONE [Concomitant]
     Dosage: 100 MG, ONCE/SINGLE
     Route: 042

REACTIONS (2)
  - CARDIAC ARREST [None]
  - RESUSCITATION [None]
